FAERS Safety Report 4579843-X (Version None)
Quarter: 2005Q1

REPORT INFORMATION
  Report Type: 
  Country: None (occurrence: None)
  Receive Date: 20050210
  Receipt Date: 20050126
  Transmission Date: 20050727
  Serious: Yes (Death)
  Sender: FDA-Public Use
  Company Number: 2004AL000688

PATIENT
  Age: 48 Year
  Sex: Male

DRUGS (2)
  1. DIAZEPAM [Suspect]
     Dosage: PO
     Route: 048
  2. AMITRIPTLINE HYDROCHLORIDE TAB [Suspect]
     Dosage: PO
     Route: 048

REACTIONS (9)
  - BLOOD PRESSURE DECREASED [None]
  - BRAIN DEATH [None]
  - CARDIO-RESPIRATORY ARREST [None]
  - COMA [None]
  - COMPLETED SUICIDE [None]
  - ELECTROCARDIOGRAM QRS COMPLEX PROLONGED [None]
  - INTENTIONAL MISUSE [None]
  - NODAL ARRHYTHMIA [None]
  - PUPIL FIXED [None]
